FAERS Safety Report 4847041-8 (Version None)
Quarter: 2005Q4

REPORT INFORMATION
  Report Type: 
  Country: None (occurrence: None)
  Receive Date: 20051205
  Receipt Date: 20051121
  Transmission Date: 20060501
  Serious: Yes (Disabling)
  Sender: FDA-Public Use
  Company Number: S05-USA-03449-01

PATIENT
  Age: 57 Year
  Sex: Female
  Weight: 37.6486 kg

DRUGS (8)
  1. THYROID TAB [Suspect]
     Indication: HYPOTHYROIDISM
     Dosage: 60 MG QD PO
     Route: 048
     Dates: start: 19950101, end: 20050101
  2. THYROID TAB [Suspect]
     Indication: HYPOTHYROIDISM
     Dosage: 45 MG QD PO
     Route: 048
     Dates: start: 20050101, end: 20050101
  3. THYROID TAB [Suspect]
     Indication: HYPOTHYROIDISM
     Dosage: 60 MG QD PO
     Route: 048
     Dates: start: 20050101
  4. THYROID TAB [Suspect]
     Indication: HYPOTHYROIDISM
     Dates: start: 20050101
  5. PROGESTERONE [Concomitant]
  6. TRIESTROGEN [Concomitant]
  7. ACIDOPHILUS [Concomitant]
  8. DEHYDROEPIANDROSTERONE [Concomitant]

REACTIONS (27)
  - ADRENAL INSUFFICIENCY [None]
  - AGITATION [None]
  - ALOPECIA [None]
  - ANTI-THYROID ANTIBODY POSITIVE [None]
  - ASTHENIA [None]
  - BLOOD CORTISOL INCREASED [None]
  - BURNING SENSATION [None]
  - CACHEXIA [None]
  - CONFUSIONAL STATE [None]
  - DIARRHOEA [None]
  - DYSGEUSIA [None]
  - DYSPNOEA [None]
  - FEELING HOT [None]
  - FUNGAL INFECTION [None]
  - GASTROINTESTINAL DISORDER [None]
  - HAIR TEXTURE ABNORMAL [None]
  - HYPERHIDROSIS [None]
  - ONYCHOMYCOSIS [None]
  - ORAL FUNGAL INFECTION [None]
  - OSTEOPOROSIS [None]
  - OVERDOSE [None]
  - PO2 DECREASED [None]
  - SKIN DISCOLOURATION [None]
  - THYROGLOBULIN INCREASED [None]
  - TREMOR [None]
  - URINE SODIUM DECREASED [None]
  - WEIGHT DECREASED [None]
